FAERS Safety Report 11111909 (Version 2)
Quarter: 2015Q3

REPORT INFORMATION
  Report Type: Spontaneous
  Country: US (occurrence: US)
  Receive Date: 20150514
  Receipt Date: 20150715
  Transmission Date: 20151125
  Serious: Yes (Hospitalization)
  Sender: FDA-Public Use
  Company Number: US-ELI_LILLY_AND_COMPANY-US201505001162

PATIENT
  Sex: Male
  Weight: 85.26 kg

DRUGS (8)
  1. EFFIENT [Suspect]
     Active Substance: PRASUGREL HYDROCHLORIDE
     Indication: STENT PLACEMENT
     Dosage: 10 MG, QD
     Route: 048
     Dates: start: 201109, end: 20120812
  2. LANTUS [Concomitant]
     Active Substance: INSULIN GLARGINE
  3. METOPROLOL [Concomitant]
     Active Substance: METOPROLOL
  4. PROTONIX [Concomitant]
     Active Substance: PANTOPRAZOLE SODIUM
  5. NOVOLOG [Concomitant]
     Active Substance: INSULIN ASPART
  6. ASPIRIN                            /00002701/ [Concomitant]
     Active Substance: ASPIRIN
  7. PRAVACHOL [Concomitant]
     Active Substance: PRAVASTATIN SODIUM
  8. SYNTHROID [Concomitant]
     Active Substance: LEVOTHYROXINE SODIUM

REACTIONS (2)
  - Cerebrovascular accident [Recovered/Resolved with Sequelae]
  - Subarachnoid haemorrhage [Recovered/Resolved]
